FAERS Safety Report 9432743 (Version 1)
Quarter: 2013Q3

REPORT INFORMATION
  Report Type: Spontaneous
  Country: CA (occurrence: CA)
  Receive Date: 20130731
  Receipt Date: 20130731
  Transmission Date: 20140515
  Serious: Yes (Other)
  Sender: FDA-Public Use
  Company Number: CA-AMGEN-CANSP2013052345

PATIENT
  Age: 66 Year
  Sex: Female

DRUGS (1)
  1. PROLIA [Suspect]
     Indication: OSTEOPOROSIS POSTMENOPAUSAL
     Dosage: UNK
     Route: 065
     Dates: start: 20121129

REACTIONS (6)
  - Abasia [Unknown]
  - Dry skin [Unknown]
  - Skin lesion [Unknown]
  - Myalgia [Unknown]
  - Pain in extremity [Unknown]
  - Eczema [Unknown]
